FAERS Safety Report 8029881-X (Version None)
Quarter: 2012Q1

REPORT INFORMATION
  Report Type: 
  Country: None (occurrence: None)
  Receive Date: 20120109
  Receipt Date: 20111222
  Transmission Date: 20120608
  Serious: Yes (Hospitalization)
  Sender: FDA-Public Use
  Company Number: JP-BAYER-2011-108597

PATIENT
  Age: 69 Year
  Sex: Male

DRUGS (6)
  1. AMLODIPINE [Concomitant]
     Indication: HYPERTENSION
     Dosage: DAILY DOSE 5 MG
     Route: 048
     Dates: start: 20100919
  2. LANSOPRAZOLE [Concomitant]
     Indication: GASTROOESOPHAGEAL REFLUX DISEASE
     Dosage: DAILY DOSE 30 MG
     Route: 048
     Dates: start: 20111117
  3. CALCIUM PHOSPHATE DIBASIC [Concomitant]
     Indication: HYPOPHOSPHATAEMIA
     Dosage: DAILY DOSE 3 G
     Route: 048
     Dates: start: 20111003
  4. ROHYPNOL [Concomitant]
     Indication: INSOMNIA
     Dosage: DAILY DOSE 2 MG
     Route: 048
     Dates: start: 20110601
  5. NEXAVAR [Suspect]
     Indication: HEPATIC NEOPLASM MALIGNANT
     Dosage: DOSE PER TREATMENT DAY: 800 MG
     Route: 048
     Dates: start: 20110921, end: 20111002
  6. NEXAVAR [Suspect]
     Dosage: 400 MG, QD
     Route: 048
     Dates: start: 20111003

REACTIONS (2)
  - VISUAL FIELD DEFECT [None]
  - CEREBRAL INFARCTION [None]
